FAERS Safety Report 19032117 (Version 2)
Quarter: 2021Q1

REPORT INFORMATION
  Report Type: Spontaneous
  Country: PT (occurrence: PT)
  Receive Date: 20210319
  Receipt Date: 20210322
  Transmission Date: 20210420
  Serious: Yes (Death, Other)
  Sender: FDA-Public Use
  Company Number: PT-ROCHE-2786560

PATIENT
  Age: 52 Year
  Sex: Female

DRUGS (6)
  1. TRASTUZUMAB. [Suspect]
     Active Substance: TRASTUZUMAB
     Indication: PRODUCT USED FOR UNKNOWN INDICATION
     Route: 065
     Dates: start: 201004, end: 201104
  2. TRASTUZUMAB. [Suspect]
     Active Substance: TRASTUZUMAB
     Dosage: TRASTUZUMAB + EXEMESTANE
     Route: 065
     Dates: start: 201305, end: 201309
  3. TRASTUZUMAB EMTANSINE [Suspect]
     Active Substance: ADO-TRASTUZUMAB EMTANSINE
     Indication: PRODUCT USED FOR UNKNOWN INDICATION
     Dosage: 55 CYCLES
     Route: 065
     Dates: start: 20131111, end: 20170130
  4. EXEMESTANE. [Concomitant]
     Active Substance: EXEMESTANE
     Dosage: TRASTUZUMAB + EXEMESTANE
     Dates: start: 201305, end: 201309
  5. TRASTUZUMAB. [Suspect]
     Active Substance: TRASTUZUMAB
     Dosage: TRASTUZUMAB + CAPECITABINE
     Route: 065
     Dates: start: 201208, end: 201305
  6. TRASTUZUMAB. [Suspect]
     Active Substance: TRASTUZUMAB
     Dosage: TRASTUZUMAB + CHEMO
     Route: 065
     Dates: start: 201107, end: 201204

REACTIONS (4)
  - Thrombocytopenia [Unknown]
  - Aspartate aminotransferase increased [Unknown]
  - Therapy partial responder [Unknown]
  - Jaundice cholestatic [Unknown]

NARRATIVE: CASE EVENT DATE: 201309
